FAERS Safety Report 5706563-8 (Version None)
Quarter: 2008Q2

REPORT INFORMATION
  Report Type: 
  Country: None (occurrence: None)
  Receive Date: 20080415
  Receipt Date: 20080401
  Transmission Date: 20081010
  Serious: Yes (Hospitalization)
  Sender: FDA-Public Use
  Company Number: FR-ELI_LILLY_AND_COMPANY-FR200804000046

PATIENT
  Sex: Female

DRUGS (6)
  1. PROZAC [Suspect]
     Indication: DEPRESSION
     Dosage: 20 MG, UNK
     Route: 048
     Dates: end: 20070924
  2. DURAGESIC-100 [Concomitant]
     Indication: OSTEOARTHRITIS
     Dosage: 50 UG, EVERY HOUR
     Route: 062
  3. LEXOMIL [Concomitant]
     Indication: DEPRESSION
     Dosage: 12 MG, UNK
     Route: 048
     Dates: end: 20070925
  4. LORAZEPAM [Concomitant]
     Indication: DEPRESSION
     Dosage: 1 MG, UNK
     Route: 048
  5. SPIRIVA [Concomitant]
     Indication: EMPHYSEMA
     Route: 055
     Dates: end: 20070924
  6. SYMBICORT [Concomitant]
     Indication: EMPHYSEMA
     Dosage: 4 D/F, DAILY (1/D)
     Route: 055

REACTIONS (3)
  - FALL [None]
  - HYPOTENSION [None]
  - RESPIRATORY DISTRESS [None]
